FAERS Safety Report 18599042 (Version 1)
Quarter: 2020Q4

REPORT INFORMATION
  Report Type: Spontaneous
  Country: US (occurrence: US)
  Receive Date: 20201210
  Receipt Date: 20201210
  Transmission Date: 20210114
  Serious: No
  Sender: FDA-Public Use
  Company Number: US-LEO PHARMA-333475

PATIENT
  Sex: Female

DRUGS (1)
  1. PICATO [Suspect]
     Active Substance: INGENOL MEBUTATE
     Indication: PRODUCT USED FOR UNKNOWN INDICATION
     Route: 061

REACTIONS (4)
  - Application site haemorrhage [Recovered/Resolved]
  - Application site exfoliation [Recovered/Resolved]
  - Application site infection [Recovered/Resolved]
  - Application site pain [Recovered/Resolved]
